FAERS Safety Report 5088567-4 (Version None)
Quarter: 2006Q3

REPORT INFORMATION
  Report Type: 
  Country: None (occurrence: None)
  Receive Date: 20060825
  Receipt Date: 20060306
  Transmission Date: 20061208
  Serious: Yes (Hospitalization)
  Sender: FDA-Public Use
  Company Number: US-BAYER-200611268BWH

PATIENT
  Age: 43 Year
  Sex: Female
  Weight: 54 kg

DRUGS (5)
  1. AVELOX [Suspect]
     Indication: UPPER RESPIRATORY TRACT INFECTION
     Dosage: TOTAL DAILY DOSE: 400 MG  UNIT DOSE: 400 MG
     Route: 048
     Dates: start: 20051213, end: 20051213
  2. AVELOX [Suspect]
     Dosage: TOTAL DAILY DOSE: 400 MG  UNIT DOSE: 400 MG
     Route: 048
     Dates: start: 20060127, end: 20060127
  3. PLAQUENIL [Concomitant]
     Indication: THERAPEUTIC PROCEDURE
     Dosage: TOTAL DAILY DOSE: 400 MG  UNIT DOSE: 200 MG
  4. PREDNISONE [Concomitant]
     Indication: THERAPEUTIC PROCEDURE
     Dosage: TOTAL DAILY DOSE: 2 MG  UNIT DOSE: 2 MG
  5. MULTIVITAMIN [Concomitant]

REACTIONS (9)
  - BODY TEMPERATURE INCREASED [None]
  - DRUG HYPERSENSITIVITY [None]
  - HYPOAESTHESIA [None]
  - MUSCLE SPASMS [None]
  - MYALGIA [None]
  - NEUROPATHY [None]
  - PAIN IN EXTREMITY [None]
  - SEPSIS [None]
  - STREPTOCOCCAL BACTERAEMIA [None]
